FAERS Safety Report 23238998 (Version 1)
Quarter: 2023Q4

REPORT INFORMATION
  Report Type: Spontaneous
  Country: US (occurrence: None)
  Receive Date: 20231129
  Receipt Date: 20231129
  Transmission Date: 20240110
  Serious: Yes (Other)
  Sender: FDA-Public Use
  Company Number: 2023A267186

PATIENT
  Sex: Female

DRUGS (2)
  1. FASENRA [Suspect]
     Active Substance: BENRALIZUMAB
     Indication: Asthma
     Route: 058
     Dates: start: 202306
  2. OPDIVO [Concomitant]
     Active Substance: NIVOLUMAB

REACTIONS (4)
  - Neoplasm malignant [Unknown]
  - Discontinued product administered [Unknown]
  - Asthma [Unknown]
  - Drug ineffective [Unknown]
